FAERS Safety Report 9092222 (Version 1)
Quarter: 2013Q1

REPORT INFORMATION
  Report Type: Report from Study
  Country: US (occurrence: US)
  Receive Date: 20130131
  Receipt Date: 20130131
  Transmission Date: 20140127
  Serious: No
  Sender: FDA-Public Use
  Company Number: US-ABBOTT-12P-163-0990701-00

PATIENT
  Sex: Male

DRUGS (5)
  1. HUMIRA [Suspect]
     Dates: start: 20120602
  2. TRAMADOL [Concomitant]
     Indication: PAIN
     Route: 048
  3. TYLENOL PM [Concomitant]
     Indication: INSOMNIA
     Route: 048
  4. NEXIUM [Concomitant]
     Indication: DYSPEPSIA
     Route: 048
  5. IMODIUM AD [Concomitant]
     Indication: DIARRHOEA
     Dosage: DAILY
     Route: 048

REACTIONS (2)
  - Diarrhoea [Not Recovered/Not Resolved]
  - Drug ineffective [Not Recovered/Not Resolved]
